FAERS Safety Report 15786146 (Version 4)
Quarter: 2019Q1

REPORT INFORMATION
  Report Type: Spontaneous
  Country: US (occurrence: US)
  Receive Date: 20190103
  Receipt Date: 20190204
  Transmission Date: 20190417
  Serious: Yes (Other)
  Sender: FDA-Public Use
  Company Number: US-AMGEN-USASP2018186966

PATIENT
  Sex: Female

DRUGS (2)
  1. BOTOX [Concomitant]
     Active Substance: ONABOTULINUMTOXINA
     Indication: MIGRAINE
     Dosage: UNK
  2. AIMOVIG [Suspect]
     Active Substance: ERENUMAB-AOOE
     Indication: PRODUCT USED FOR UNKNOWN INDICATION
     Dosage: UNK
     Route: 065
     Dates: start: 201809

REACTIONS (21)
  - Loss of consciousness [Recovering/Resolving]
  - Depression [Recovering/Resolving]
  - Alopecia [Recovering/Resolving]
  - Constipation [Recovering/Resolving]
  - Menstruation irregular [Recovering/Resolving]
  - Weight increased [Recovering/Resolving]
  - Insomnia [Recovering/Resolving]
  - Fatigue [Recovering/Resolving]
  - Bronchitis [Recovering/Resolving]
  - Blood thyroid stimulating hormone increased [Recovering/Resolving]
  - Vertigo [Recovering/Resolving]
  - Arthralgia [Recovering/Resolving]
  - Upper respiratory tract infection [Recovering/Resolving]
  - Influenza [Recovering/Resolving]
  - Anxiety [Recovering/Resolving]
  - Sinusitis [Recovering/Resolving]
  - Myalgia [Recovering/Resolving]
  - Toothache [Recovering/Resolving]
  - Blood pressure increased [Recovered/Resolved]
  - Restless legs syndrome [Recovering/Resolving]
  - Back pain [Recovering/Resolving]

NARRATIVE: CASE EVENT DATE: 2018
